FAERS Safety Report 4385696-5 (Version None)
Quarter: 2004Q2

REPORT INFORMATION
  Report Type: 
  Country: None (occurrence: None)
  Receive Date: 20040625
  Receipt Date: 20040625
  Transmission Date: 20050107
  Serious: No
  Sender: FDA-Public Use
  Company Number: None

PATIENT
  Sex: Male
  Weight: 72.5755 kg

DRUGS (1)
  1. ALLEGRA-D [Suspect]
     Dosage: I TAB Q AM ORAL
     Route: 048
     Dates: start: 20040620, end: 20040623

REACTIONS (2)
  - DIZZINESS [None]
  - HYPERTENSION [None]
